FAERS Safety Report 11634263 (Version 3)
Quarter: 2015Q4

REPORT INFORMATION
  Report Type: Report from Study
  Country: US (occurrence: US)
  Receive Date: 20151015
  Receipt Date: 20151211
  Transmission Date: 20160304
  Serious: Yes (Hospitalization)
  Sender: FDA-Public Use
  Company Number: US-UCBSA-2015032305

PATIENT
  Age: 28 Year
  Sex: Male
  Weight: 54 kg

DRUGS (3)
  1. METHOTREXATE [Concomitant]
     Active Substance: METHOTREXATE
     Indication: CROHN^S DISEASE
     Dosage: 25 ML, WEEKLY (QW)
     Route: 058
  2. CERTOLIZUMAB PEGOL [Suspect]
     Active Substance: CERTOLIZUMAB PEGOL
     Indication: CROHN^S DISEASE
     Dosage: 400 MG, EV 2 WEEKS(QOW) (LOADING DOSE)
     Route: 058
  3. CERTOLIZUMAB PEGOL [Suspect]
     Active Substance: CERTOLIZUMAB PEGOL
     Dosage: 400 MG, EV 2 WEEKS(QOW)(MAINTENANCE DOSE)
     Route: 058
     Dates: start: 20150801, end: 20150912

REACTIONS (4)
  - Hypersomnia [Not Recovered/Not Resolved]
  - Asthenia [Not Recovered/Not Resolved]
  - Intestinal resection [Unknown]
  - Off label use [Unknown]

NARRATIVE: CASE EVENT DATE: 2015
